FAERS Safety Report 6775096-2 (Version None)
Quarter: 2010Q2

REPORT INFORMATION
  Report Type: 
  Country: None (occurrence: None)
  Receive Date: 20100617
  Receipt Date: 20100610
  Transmission Date: 20101027
  Serious: Yes (Hospitalization)
  Sender: FDA-Public Use
  Company Number: B0660906A

PATIENT
  Sex: Male

DRUGS (3)
  1. NABUCOX [Suspect]
     Indication: SCIATICA
     Dosage: 1G TWICE PER DAY
     Route: 048
     Dates: start: 20100423, end: 20100428
  2. THIOCOLCHICOSIDE [Suspect]
     Indication: DRUG USE FOR UNKNOWN INDICATION
     Dosage: 4MG TWICE PER DAY
     Route: 048
     Dates: start: 20100423, end: 20100428
  3. EFFERALGAN [Suspect]
     Indication: DRUG USE FOR UNKNOWN INDICATION
     Route: 048
     Dates: start: 20100423, end: 20100430

REACTIONS (5)
  - INFLAMMATION [None]
  - OEDEMA PERIPHERAL [None]
  - PURPURA NON-THROMBOCYTOPENIC [None]
  - SKIN NECROSIS [None]
  - WOUND [None]
